FAERS Safety Report 8249293-3 (Version None)
Quarter: 2012Q1

REPORT INFORMATION
  Report Type: 
  Country: None (occurrence: None)
  Receive Date: 20120327
  Receipt Date: 20120321
  Transmission Date: 20120608
  Serious: Yes (Hospitalization, Other)
  Sender: FDA-Public Use
  Company Number: 2010SP062574

PATIENT
  Age: 42 Year
  Sex: Female
  Weight: 57.1532 kg

DRUGS (2)
  1. NUVARING [Suspect]
     Indication: CONTRACEPTION
     Dates: start: 20060101, end: 20081204
  2. IMIPRAMINE [Suspect]
     Indication: MIGRAINE
     Dates: end: 20081204

REACTIONS (59)
  - DEPRESSION [None]
  - PAIN [None]
  - ARTHRALGIA [None]
  - UTERINE POLYP [None]
  - LIGAMENT SPRAIN [None]
  - MITRAL VALVE PROLAPSE [None]
  - TRANSIENT ISCHAEMIC ATTACK [None]
  - WEIGHT INCREASED [None]
  - ROAD TRAFFIC ACCIDENT [None]
  - FATIGUE [None]
  - SYNCOPE [None]
  - STRESS [None]
  - HYPOAESTHESIA [None]
  - EMOTIONAL DISORDER [None]
  - INTERVERTEBRAL DISC DEGENERATION [None]
  - AMNESIA [None]
  - MASS [None]
  - DIZZINESS [None]
  - DIARRHOEA [None]
  - BREAST CYST [None]
  - ANAPHYLACTIC SHOCK [None]
  - ALOPECIA [None]
  - TRICUSPID VALVE INCOMPETENCE [None]
  - HAEMORRHAGE [None]
  - ABDOMINAL DISCOMFORT [None]
  - VEIN DISORDER [None]
  - NAUSEA [None]
  - NECK PAIN [None]
  - BACK PAIN [None]
  - HYPERTENSION [None]
  - NEOVASCULARISATION [None]
  - CYST [None]
  - PRESYNCOPE [None]
  - SOMNAMBULISM [None]
  - CEREBRAL ARTERY STENOSIS [None]
  - ACCIDENT [None]
  - MENTAL STATUS CHANGES [None]
  - INFARCTION [None]
  - LIPIDS INCREASED [None]
  - NEUROLOGICAL SYMPTOM [None]
  - VOMITING [None]
  - COGNITIVE DISORDER [None]
  - IMPAIRED WORK ABILITY [None]
  - RHEUMATOID ARTHRITIS [None]
  - ANXIETY [None]
  - PITUITARY TUMOUR BENIGN [None]
  - ANAEMIA [None]
  - RHEUMATOID FACTOR POSITIVE [None]
  - ORTHOSTATIC HYPOTENSION [None]
  - HYPERSENSITIVITY [None]
  - CEREBROVASCULAR ACCIDENT [None]
  - FEAR [None]
  - FALL [None]
  - ASTHMA [None]
  - MITRAL VALVE INCOMPETENCE [None]
  - ISCHAEMIA [None]
  - LOSS OF CONSCIOUSNESS [None]
  - AUTONOMIC NERVOUS SYSTEM IMBALANCE [None]
  - MULTIPLE ALLERGIES [None]
